FAERS Safety Report 24937113 (Version 2)
Quarter: 2025Q3

REPORT INFORMATION
  Report Type: Report from Study
  Country: US (occurrence: US)
  Receive Date: 20250206
  Receipt Date: 20250809
  Transmission Date: 20251021
  Serious: Yes (Other)
  Sender: ALEXION PHARMACEUTICALS
  Company Number: US-AstraZeneca-CH-00799120A

PATIENT
  Sex: Female

DRUGS (1)
  1. OSIMERTINIB [Suspect]
     Active Substance: OSIMERTINIB

REACTIONS (5)
  - Bipolar disorder [Unknown]
  - Diarrhoea [Unknown]
  - Insomnia [Unknown]
  - Mania [Unknown]
  - Frustration tolerance decreased [Unknown]
